FAERS Safety Report 5876280-2 (Version None)
Quarter: 2008Q3

REPORT INFORMATION
  Report Type: 
  Country: None (occurrence: None)
  Receive Date: 20080909
  Receipt Date: 20080909
  Transmission Date: 20090109
  Serious: Yes (Life-Threatening, Hospitalization)
  Sender: FDA-Public Use
  Company Number: None

PATIENT
  Age: 50 Year
  Sex: Male

DRUGS (1)
  1. COUMADIN [Suspect]

REACTIONS (10)
  - CHILLS [None]
  - DYSPNOEA [None]
  - HEADACHE [None]
  - HYPERTENSION [None]
  - HYPOTENSION [None]
  - MENINGITIS [None]
  - OXYGEN SATURATION DECREASED [None]
  - PYREXIA [None]
  - TACHYPNOEA [None]
  - TRANSFUSION-RELATED ACUTE LUNG INJURY [None]
